FAERS Safety Report 5032878-5 (Version None)
Quarter: 2006Q2

REPORT INFORMATION
  Report Type: 
  Country: None (occurrence: None)
  Receive Date: 20060622
  Receipt Date: 20060619
  Transmission Date: 20061013
  Serious: Yes (Other)
  Sender: FDA-Public Use
  Company Number: NL-GLAXOSMITHKLINE-B0428358A

PATIENT
  Age: 62 Year
  Sex: Male
  Weight: 87 kg

DRUGS (4)
  1. AVODART [Suspect]
     Indication: DRUG USE FOR UNKNOWN INDICATION
     Dosage: .5MG PER DAY
     Route: 065
     Dates: start: 20060501
  2. METOPROLOL SR [Concomitant]
     Dosage: 50MG PER DAY
     Route: 065
     Dates: start: 19920101
  3. ACETYLSALICYLIC ACID SRT [Concomitant]
     Dosage: 80MG PER DAY
     Route: 065
     Dates: start: 19920101
  4. XATRAL [Concomitant]
     Route: 065

REACTIONS (2)
  - ANGINA PECTORIS [None]
  - CHEST PAIN [None]
